FAERS Safety Report 14188116 (Version 1)
Quarter: 2017Q4

REPORT INFORMATION
  Report Type: Spontaneous
  Country: US (occurrence: US)
  Receive Date: 20171114
  Receipt Date: 20171114
  Transmission Date: 20180321
  Serious: Yes (Death)
  Sender: FDA-Public Use
  Company Number: US-BAYER-2017-217559

PATIENT
  Age: 104 Year
  Sex: Female

DRUGS (1)
  1. BAYER ASPIRIN [Suspect]
     Active Substance: ASPIRIN
     Dosage: 1 DF, QD ( FOR 70 YEARS)

REACTIONS (2)
  - Haematemesis [Fatal]
  - Incorrect drug administration duration [Unknown]
